FAERS Safety Report 5515442-0 (Version None)
Quarter: 2007Q4

REPORT INFORMATION
  Report Type: 
  Country: None (occurrence: None)
  Receive Date: 20071113
  Receipt Date: 20070228
  Transmission Date: 20080405
  Serious: No
  Sender: FDA-Public Use
  Company Number: A0640051A

PATIENT
  Age: 73 Year
  Sex: Male
  Weight: 141.8 kg

DRUGS (8)
  1. COREG [Suspect]
     Indication: DRUG USE FOR UNKNOWN INDICATION
     Dosage: 3.125MG TWICE PER DAY
     Route: 048
     Dates: start: 20070115, end: 20070206
  2. ZOCOR [Concomitant]
  3. LASIX [Concomitant]
  4. ASPIRIN [Concomitant]
  5. HUMALOG [Concomitant]
  6. ARTHROTEC [Concomitant]
  7. LISINOPRIL [Concomitant]
     Dosage: 20MG TWICE PER DAY
  8. NORVASC [Concomitant]
     Dosage: 10MG IN THE MORNING

REACTIONS (5)
  - AGITATION [None]
  - LOSS OF CONTROL OF LEGS [None]
  - MIDDLE INSOMNIA [None]
  - MOVEMENT DISORDER [None]
  - RESTLESSNESS [None]
